FAERS Safety Report 25015291 (Version 1)
Quarter: 2025Q1

REPORT INFORMATION
  Report Type: Spontaneous
  Country: US (occurrence: US)
  Receive Date: 20250226
  Receipt Date: 20250226
  Transmission Date: 20250409
  Serious: No
  Sender: ABBVIE
  Company Number: US-ABBVIE-6147965

PATIENT
  Sex: Female

DRUGS (1)
  1. ARMOUR THYROID [Suspect]
     Active Substance: THYROID, PORCINE
     Indication: Product used for unknown indication
     Route: 048

REACTIONS (10)
  - Multiple allergies [Unknown]
  - Weight decreased [Unknown]
  - Irritability [Unknown]
  - Agitation [Unknown]
  - Product colour issue [Not Recovered/Not Resolved]
  - Hypoaesthesia [Unknown]
  - Cardiac flutter [Unknown]
  - Product lot number issue [Not Recovered/Not Resolved]
  - Poor quality sleep [Unknown]
  - Product size issue [Not Recovered/Not Resolved]
